FAERS Safety Report 4511249-1 (Version None)
Quarter: 2004Q4

REPORT INFORMATION
  Report Type: 
  Country: None (occurrence: None)
  Receive Date: 20041122
  Receipt Date: 20041122
  Transmission Date: 20050328
  Serious: Yes (Life-Threatening, Hospitalization, Disabling, Other)
  Sender: FDA-Public Use
  Company Number: None

PATIENT
  Age: 80 Year
  Sex: Male
  Weight: 90.7194 kg

DRUGS (2)
  1. GENTAMICIN [Suspect]
     Indication: KIDNEY INFECTION
     Dosage: ONCE DAILY
     Dates: start: 20010427, end: 20010507
  2. GENTAMICIN [Suspect]
     Indication: SERRATIA INFECTION
     Dosage: ONCE DAILY
     Dates: start: 20010427, end: 20010507

REACTIONS (7)
  - ACTIVITIES OF DAILY LIVING IMPAIRED [None]
  - BALANCE DISORDER [None]
  - DIALYSIS [None]
  - DIZZINESS [None]
  - FEELING ABNORMAL [None]
  - MEDICATION ERROR [None]
  - RENAL FAILURE [None]
